FAERS Safety Report 16566278 (Version 1)
Quarter: 2019Q3

REPORT INFORMATION
  Report Type: Spontaneous
  Country: US (occurrence: US)
  Receive Date: 20190712
  Receipt Date: 20190712
  Transmission Date: 20191004
  Serious: No
  Sender: FDA-Public Use
  Company Number: US-ASTRAZENECA-2019SE87936

PATIENT
  Age: 31624 Day
  Sex: Female
  Weight: 55.8 kg

DRUGS (1)
  1. SYMBICORT [Suspect]
     Active Substance: BUDESONIDE\FORMOTEROL FUMARATE DIHYDRATE
     Indication: LUNG DISORDER
     Dosage: 160/4.5 MCG 2 PUFFS TWICE A DAY
     Route: 055
     Dates: start: 20190610

REACTIONS (8)
  - Mouth swelling [Unknown]
  - Lip swelling [Unknown]
  - Dysgeusia [Unknown]
  - Product use in unapproved indication [Unknown]
  - Dry mouth [Unknown]
  - Thirst [Unknown]
  - Swollen tongue [Unknown]
  - Off label use [Unknown]

NARRATIVE: CASE EVENT DATE: 20190610
